FAERS Safety Report 4687210-3 (Version None)
Quarter: 2005Q2

REPORT INFORMATION
  Report Type: 
  Country: None (occurrence: None)
  Receive Date: 20050610
  Receipt Date: 20050603
  Transmission Date: 20051028
  Serious: Yes (Hospitalization)
  Sender: FDA-Public Use
  Company Number: PHBS2005DE08009

PATIENT
  Age: 53 Year
  Sex: Male

DRUGS (3)
  1. CYCLOSPORINE [Suspect]
     Indication: HEART TRANSPLANT
     Dosage: UNK, UNK
     Route: 065
     Dates: start: 19990101
  2. AZATHIOPRINE [Suspect]
     Indication: HEART TRANSPLANT
     Dosage: 1 MG/KG/D
     Route: 065
     Dates: start: 19990101
  3. PREDNISOLONE [Suspect]
     Indication: HEART TRANSPLANT
     Dosage: 0.1 MG/KG/D
     Route: 065
     Dates: start: 19990101

REACTIONS (12)
  - ABDOMINAL PAIN [None]
  - C-REACTIVE PROTEIN INCREASED [None]
  - COLECTOMY [None]
  - COLITIS ULCERATIVE [None]
  - DIARRHOEA HAEMORRHAGIC [None]
  - EPSTEIN-BARR VIRUS ANTIBODY POSITIVE [None]
  - EPSTEIN-BARR VIRUS INFECTION [None]
  - ILEOSTOMY [None]
  - LAPAROTOMY [None]
  - PYREXIA [None]
  - RED BLOOD CELL SEDIMENTATION RATE INCREASED [None]
  - VIRAL DNA TEST POSITIVE [None]
